FAERS Safety Report 5246479-7 (Version None)
Quarter: 2007Q1

REPORT INFORMATION
  Report Type: 
  Country: None (occurrence: None)
  Receive Date: 20070216
  Receipt Date: 20070202
  Transmission Date: 20070707
  Serious: Yes (Death, Hospitalization)
  Sender: FDA-Public Use
  Company Number: 2007SP000386

PATIENT
  Age: 33 Year
  Sex: Female
  Weight: 81.6475 kg

DRUGS (10)
  1. XOPENEX [Suspect]
     Indication: ASTHMA
     Dosage: '1X; INHALATION
     Route: 055
     Dates: start: 20070125, end: 20070125
  2. ENALAPRIL MALEATE [Concomitant]
  3. CHLOROTHIAZIDE [Concomitant]
  4. AVIANE-21 [Concomitant]
  5. ZYRTEC [Concomitant]
  6. NEXIUM [Concomitant]
  7. SINGULAIR [Concomitant]
  8. PROVIGIL [Concomitant]
  9. AMOXICILLIN [Concomitant]
  10. TUSSIONEX [Concomitant]

REACTIONS (4)
  - EPISTAXIS [None]
  - HAEMOPTYSIS [None]
  - PULMONARY HAEMORRHAGE [None]
  - PULMONARY THROMBOSIS [None]
